FAERS Safety Report 8024177-4 (Version None)
Quarter: 2012Q1

REPORT INFORMATION
  Report Type: 
  Country: None (occurrence: None)
  Receive Date: 20120105
  Receipt Date: 20111226
  Transmission Date: 20120608
  Serious: Yes (Hospitalization)
  Sender: FDA-Public Use
  Company Number: BR-BIOMARINP-002204

PATIENT
  Sex: Female
  Weight: 15 kg

DRUGS (6)
  1. NAGLAZYME [Suspect]
     Indication: MUCOPOLYSACCHARIDOSIS VI
     Route: 041
     Dates: start: 20111208
  2. POLARAMINE [Concomitant]
     Indication: PREMEDICATION
  3. AMOXICILLIN [Concomitant]
  4. HYDROCORTISONE [Concomitant]
     Indication: PREMEDICATION
  5. DEXMETHASONE [Concomitant]
  6. DIPIRONE [Concomitant]

REACTIONS (1)
  - PNEUMONIA [None]
